FAERS Safety Report 11813803 (Version 1)
Quarter: 2015Q4

REPORT INFORMATION
  Report Type: Spontaneous
  Country: US (occurrence: None)
  Receive Date: 20151208
  Receipt Date: 20151208
  Transmission Date: 20160305
  Serious: Yes (Life-Threatening, Other)
  Sender: FDA-Public Use
  Company Number: None

PATIENT
  Age: 54 Year
  Sex: Male
  Weight: 93.44 kg

DRUGS (4)
  1. ALLOPURINOL. [Concomitant]
     Active Substance: ALLOPURINOL
  2. POTASSIUM CITRATE. [Concomitant]
     Active Substance: POTASSIUM CITRATE
  3. LIPITOR [Suspect]
     Active Substance: ATORVASTATIN CALCIUM
     Indication: BLOOD CHOLESTEROL INCREASED
     Dosage: APPROX FOUR YEARS
     Route: 048
  4. COQ10 [Concomitant]
     Active Substance: UBIDECARENONE

REACTIONS (10)
  - Blood glucose increased [None]
  - Rhabdomyolysis [None]
  - Renal impairment [None]
  - Fatigue [None]
  - Movement disorder [None]
  - Chromaturia [None]
  - Renal disorder [None]
  - Micturition urgency [None]
  - Asthenia [None]
  - Myoglobinuria [None]

NARRATIVE: CASE EVENT DATE: 20140922
